FAERS Safety Report 13445535 (Version 1)
Quarter: 2017Q2

REPORT INFORMATION
  Report Type: Spontaneous
  Country: US (occurrence: US)
  Receive Date: 20170415
  Receipt Date: 20170415
  Transmission Date: 20170830
  Serious: No
  Sender: FDA-Public Use
  Company Number: US-BION-005830

PATIENT
  Sex: Female

DRUGS (1)
  1. ALEVE [Suspect]
     Active Substance: NAPROXEN SODIUM
     Indication: PRODUCT USED FOR UNKNOWN INDICATION
     Dosage: LIQUID GELS
     Route: 048
     Dates: start: 2015, end: 20160612

REACTIONS (2)
  - Product use issue [Not Recovered/Not Resolved]
  - Drug prescribing error [Not Recovered/Not Resolved]
